FAERS Safety Report 5625002-9 (Version None)
Quarter: 2008Q1

REPORT INFORMATION
  Report Type: 
  Country: None (occurrence: None)
  Receive Date: 20080213
  Receipt Date: 20080201
  Transmission Date: 20080703
  Serious: Yes (Other)
  Sender: FDA-Public Use
  Company Number: US-PFIZER INC-2007101786

PATIENT
  Sex: Female
  Weight: 65 kg

DRUGS (2)
  1. AROMASIN [Suspect]
     Indication: BREAST CANCER
     Route: 048
     Dates: start: 20040701, end: 20071217
  2. FOSAMAX [Concomitant]
     Route: 048

REACTIONS (3)
  - ANXIETY [None]
  - CONVERSION DISORDER [None]
  - IMPAIRED DRIVING ABILITY [None]
